FAERS Safety Report 15307997 (Version 8)
Quarter: 2025Q2

REPORT INFORMATION
  Report Type: Report from Study
  Country: US (occurrence: US)
  Receive Date: 20180822
  Receipt Date: 20250523
  Transmission Date: 20250717
  Serious: Yes (Other)
  Sender: TAKEDA
  Company Number: US-SHIRE-US201831853

PATIENT
  Age: 62 Year
  Sex: Female
  Weight: 111 kg

DRUGS (24)
  1. ICATIBANT [Suspect]
     Active Substance: ICATIBANT ACETATE
     Indication: Immune system disorder
  2. ICATIBANT [Suspect]
     Active Substance: ICATIBANT ACETATE
  3. ICATIBANT [Suspect]
     Active Substance: ICATIBANT ACETATE
  4. ICATIBANT [Suspect]
     Active Substance: ICATIBANT ACETATE
  5. ICATIBANT [Suspect]
     Active Substance: ICATIBANT ACETATE
  6. CINRYZE [Suspect]
     Active Substance: HUMAN C1-ESTERASE INHIBITOR
     Indication: Immune system disorder
  7. CINRYZE [Suspect]
     Active Substance: HUMAN C1-ESTERASE INHIBITOR
  8. CINRYZE [Suspect]
     Active Substance: HUMAN C1-ESTERASE INHIBITOR
  9. TAKHZYRO [Suspect]
     Active Substance: LANADELUMAB-FLYO
     Indication: Product used for unknown indication
  10. SODIUM CHLORIDE [Concomitant]
     Active Substance: SODIUM CHLORIDE
  11. STERILE WATER [Concomitant]
     Active Substance: WATER
  12. EPINEPHRINE [Concomitant]
     Active Substance: EPINEPHRINE
  13. TIZANIDINE [Concomitant]
     Active Substance: TIZANIDINE
  14. ZYRTEC [Concomitant]
     Active Substance: CETIRIZINE HYDROCHLORIDE
  15. SPIRIVA [Concomitant]
     Active Substance: TIOTROPIUM BROMIDE MONOHYDRATE
  16. VITAMIN D3 [Concomitant]
     Active Substance: CHOLECALCIFEROL
  17. VITAMIN B COMPLEX [Concomitant]
     Active Substance: CYANOCOBALAMIN\DEXPANTHENOL\NIACINAMIDE\PYRIDOXINE HYDROCHLORIDE\RIBOFLAVIN 5^-PHOSPHATE SODIUM\THIA
  18. CLARITIN [Concomitant]
     Active Substance: LORATADINE
  19. YUVAFEM [Concomitant]
     Active Substance: ESTRADIOL HEMIHYDRATE
  20. METHOTREXATE [Concomitant]
     Active Substance: METHOTREXATE
  21. COENZYME Q10 [Concomitant]
     Active Substance: DIETARY SUPPLEMENT\UBIDECARENONE
     Indication: Product used for unknown indication
  22. GABAPENTIN [Concomitant]
     Active Substance: GABAPENTIN
  23. FOLIC ACID [Concomitant]
     Active Substance: FOLIC ACID
  24. AZELASTINE [Concomitant]
     Active Substance: AZELASTINE

REACTIONS (19)
  - Vaginal infection [Recovered/Resolved]
  - Nephrolithiasis [Unknown]
  - Laryngeal oedema [Recovered/Resolved]
  - Respiratory tract infection [Unknown]
  - Weight decreased [Unknown]
  - Arthralgia [Unknown]
  - Back pain [Unknown]
  - Muscle spasms [Unknown]
  - Renal pain [Unknown]
  - Vomiting [Unknown]
  - Product use issue [Unknown]
  - Syringe issue [Unknown]
  - Incorrect dose administered [Unknown]
  - Device issue [Unknown]
  - Sinus congestion [Unknown]
  - Infusion related reaction [Unknown]
  - Drug hypersensitivity [Unknown]
  - Hereditary angioedema [Recovered/Resolved]
  - Pruritus [Unknown]

NARRATIVE: CASE EVENT DATE: 20180813
